FAERS Safety Report 14071385 (Version 3)
Quarter: 2017Q4

REPORT INFORMATION
  Report Type: Spontaneous
  Country: US (occurrence: US)
  Receive Date: 20171011
  Receipt Date: 20171116
  Transmission Date: 20180321
  Serious: Yes (Hospitalization, Other)
  Sender: FDA-Public Use
  Company Number: US-CIPLA LTD.-2017US17813

PATIENT

DRUGS (32)
  1. SERTRALINE [Interacting]
     Active Substance: SERTRALINE HYDROCHLORIDE
     Dosage: 25 MG, UNK
     Route: 048
  2. PROIRON [Concomitant]
     Dosage: UNK
     Route: 065
  3. BUPROPRION XL [Concomitant]
     Active Substance: BUPROPION
     Dosage: 150 MG, QD
     Route: 048
  4. BUPROPRION XL [Concomitant]
     Active Substance: BUPROPION
     Dosage: 100 MG, EVERY 12 HOURS
     Route: 048
  5. SILDENAFIL. [Concomitant]
     Active Substance: SILDENAFIL
     Dosage: 100 MG, AS NEEDED
     Route: 048
  6. GLUTAMINE [Concomitant]
     Active Substance: GLUTAMINE
     Dosage: UNK
     Route: 065
  7. CLK [Concomitant]
     Dosage: UNK
     Route: 065
  8. KRE-ALKALYN [Concomitant]
     Dosage: UNK
     Route: 065
  9. 5-HYDROXYTRYPTOPHAN (NATROL) [Interacting]
     Active Substance: OXITRIPTAN
     Dosage: UNK
     Route: 065
  10. CLA [Concomitant]
     Dosage: UNK
     Route: 065
  11. CRAVING CRUSH [Concomitant]
     Dosage: UNK
     Route: 065
  12. DIVALPROEX ER [Concomitant]
     Active Substance: DIVALPROEX SODIUM
     Dosage: 1000 MG, BID
     Route: 048
  13. T-BOOST [Concomitant]
     Dosage: UNK
     Route: 065
  14. CYCLOBENZAPRINE. [Concomitant]
     Active Substance: CYCLOBENZAPRINE
     Dosage: UNK
     Route: 048
  15. BURN 60 [Concomitant]
     Dosage: UNK
     Route: 065
  16. CYCLE ARMOUR [Concomitant]
     Dosage: UNK
     Route: 065
  17. MALIC ACID [Concomitant]
     Active Substance: MALIC ACID
     Dosage: UNK
     Route: 065
  18. MASS [Concomitant]
     Dosage: UNK
     Route: 065
  19. JACKED MUSCLE EXTREME [Concomitant]
     Active Substance: DIETARY SUPPLEMENT
     Dosage: UNK
     Route: 065
  20. SERTRALINE [Suspect]
     Active Substance: SERTRALINE HYDROCHLORIDE
     Dosage: 200 MG, QD EVERY MORNING
     Route: 048
  21. GAIN272 [Concomitant]
     Dosage: UNK
     Route: 065
  22. LEAN MUSCLE [Concomitant]
     Dosage: UNK
     Route: 065
  23. ULTIMATE MUSCLE [Concomitant]
     Dosage: UNK
     Route: 065
  24. LIPRO 6 [Concomitant]
     Dosage: UNK
     Route: 065
  25. CLA PM [Concomitant]
     Dosage: UNK
     Route: 065
  26. PRO-HORMONE X3 [Concomitant]
     Dosage: UNK
     Route: 065
  27. TESTX180 [Concomitant]
     Dosage: UNK
     Route: 065
  28. PRAZOSIN. [Concomitant]
     Active Substance: PRAZOSIN
     Dosage: 6 MG, QD AT BED TIME
     Route: 048
  29. AM/PM BURNER [Concomitant]
     Dosage: UNK
     Route: 065
  30. KYANI NITRO FX [Concomitant]
     Dosage: UNK
     Route: 065
  31. QUADRA LEAN [Concomitant]
     Dosage: UNK
     Route: 065
  32. HYDROXYZINE HYDROCHLORIDE. [Concomitant]
     Active Substance: HYDROXYZINE HYDROCHLORIDE
     Dosage: 50 MG, QD AT BED TIME
     Route: 048

REACTIONS (5)
  - Compartment syndrome [Recovered/Resolved]
  - Serotonin syndrome [Recovered/Resolved]
  - Drug interaction [Unknown]
  - Food interaction [Unknown]
  - Rhabdomyolysis [Recovered/Resolved]
